FAERS Safety Report 4707378-X (Version None)
Quarter: 2005Q3

REPORT INFORMATION
  Report Type: 
  Country: None (occurrence: None)
  Receive Date: 20050706
  Receipt Date: 20050705
  Transmission Date: 20060218
  Serious: Yes (Death)
  Sender: FDA-Public Use
  Company Number: KR-SANOFI-SYNTHELABO-F01200501153

PATIENT
  Sex: Male

DRUGS (3)
  1. ELOXATIN [Suspect]
     Dosage: 130 MG/M2 DAY 1
     Route: 042
     Dates: start: 20050608, end: 20050608
  2. CAPECITABINE [Suspect]
     Dosage: 1000 MG/M2 DAY 1-14
     Route: 065
     Dates: start: 20050608, end: 20050617
  3. FEROBA [Concomitant]
     Dosage: UNK
     Route: 065
     Dates: start: 20050421, end: 20050618

REACTIONS (1)
  - PNEUMONIA [None]
